FAERS Safety Report 24526233 (Version 2)
Quarter: 2024Q4

REPORT INFORMATION
  Report Type: Spontaneous
  Country: FR (occurrence: FR)
  Receive Date: 20241021
  Receipt Date: 20241231
  Transmission Date: 20250114
  Serious: Yes (Life-Threatening, Hospitalization, Other)
  Sender: ACCORD
  Company Number: None

PATIENT
  Age: 69 Year
  Sex: Female
  Weight: 81.8 kg

DRUGS (21)
  1. QUETIAPINE [Suspect]
     Active Substance: QUETIAPINE
     Indication: Bipolar disorder
     Dosage: 2 TABLETS OF 400 MG IN THE EVENING
     Dates: end: 20240828
  2. HALDOL [Suspect]
     Active Substance: HALOPERIDOL
     Indication: Bipolar disorder
     Dates: end: 20240827
  3. TERALITHE [Suspect]
     Active Substance: LITHIUM CARBONATE
     Indication: Bipolar disorder
     Dosage: STRENGTH: 400 MG, PROLONGED-RELEASE SCORED TABLET
     Dates: start: 2018
  4. LOXAPINE [Suspect]
     Active Substance: LOXAPINE
     Indication: Psychiatric decompensation
     Dosage: 25 MG MORNING, NOON AND 100 MG IN THE EVENING
     Dates: start: 20240624, end: 20240827
  5. ARTISIAL [Suspect]
     Active Substance: CALCIUM CHLORIDE\MAGNESIUM CHLORIDE\POTASSIUM CHLORIDE\POTASSIUM PHOSPHATE, DIBASIC\POTASSIUM PHOSPH
     Indication: Product used for unknown indication
     Dosage: SPRAY 2 SPRAYS 3X/DAY
  6. FENOFIBRATE [Suspect]
     Active Substance: FENOFIBRATE
     Indication: Product used for unknown indication
     Dosage: 1 TABLET IN THE MORNING
  7. POLYETHYLENE GLYCOL 4000 [Suspect]
     Active Substance: POLYETHYLENE GLYCOL 4000
     Indication: Product used for unknown indication
     Dosage: 2 SACHETS MORNING AND MIDDAY
  8. GLUCOPHAGE [Suspect]
     Active Substance: METFORMIN HYDROCHLORIDE
     Indication: Product used for unknown indication
     Dosage: 1000 MILLIGRAM, BID
  9. HALOPERIDOL [Suspect]
     Active Substance: HALOPERIDOL
     Indication: Bipolar disorder
     Dosage: 10 DROP IN 1 DAY , 10 DROP
     Dates: start: 20240827, end: 20240827
  10. IMOVANE [Suspect]
     Active Substance: ZOPICLONE
     Dosage: 7.5 MILLIGRAM, 7.5 MG 1 CAP AT BEDTIME
  11. ACETAMINOPHEN [Suspect]
     Active Substance: ACETAMINOPHEN
     Indication: Product used for unknown indication
     Dosage: 2 TABLETS, 3 TIMES A DAY, IF NECESSARY
  12. SERETIDE [Suspect]
     Active Substance: FLUTICASONE PROPIONATE\SALMETEROL XINAFOATE
     Indication: Product used for unknown indication
     Dosage: 250/25 MCG/DOSE 1 PUFF MORNING AND EVENING
  13. ANETHOLTRITHION [Suspect]
     Active Substance: ANETHOLTRITHION
     Indication: Product used for unknown indication
     Dosage: 1 TABLET MORNING, NOON AND EVENING
  14. POLYETHYLENE GLYCOLS [Suspect]
     Active Substance: POLYETHYLENE GLYCOLS
     Indication: Product used for unknown indication
     Dosage: 2 SACHETS MORNING AND MIDDAY
  15. VALIUM [Suspect]
     Active Substance: DIAZEPAM
     Dosage: 5 MG, QD, 5 MG 1 CAP AT BEDTIME (SINCE JUN-2024)
     Dates: start: 202406
  16. VENTOLIN [Suspect]
     Active Substance: ALBUTEROL SULFATE
     Indication: Product used for unknown indication
     Dosage: 2 PUFFS 3 TIMES A DAY
  17. TERALITHE [Suspect]
     Active Substance: LITHIUM CARBONATE
     Indication: Bipolar disorder
     Dosage: 800 MILLIGRAM, QD
     Dates: start: 2024
  18. TERALITHE [Suspect]
     Active Substance: LITHIUM CARBONATE
     Indication: Bipolar disorder
     Dosage: 600 MILLIGRAM, QD
     Dates: start: 20240616
  19. TERALITHE [Suspect]
     Active Substance: LITHIUM CARBONATE
     Indication: Bipolar disorder
     Dosage: 800 MILLIGRAM, THERAPEUTIC WINDOW AND GRADUAL RESUMPTION
     Dates: start: 20240625
  20. TERALITHE [Suspect]
     Active Substance: LITHIUM CARBONATE
     Indication: Bipolar disorder
     Dosage: 200 MILLIGRAM, QD
     Dates: start: 20240905
  21. TERALITHE [Suspect]
     Active Substance: LITHIUM CARBONATE
     Indication: Bipolar disorder
     Dosage: 400 MILLIGRAM, QD
     Dates: start: 20240910

REACTIONS (6)
  - Neuroleptic malignant syndrome [Recovered/Resolved]
  - Faecaloma [Recovered/Resolved]
  - Impaired gastric emptying [Unknown]
  - Pulmonary embolism [Recovered/Resolved]
  - Extrapyramidal disorder [Recovered/Resolved]
  - Fall [Recovered/Resolved]

NARRATIVE: CASE EVENT DATE: 20200101
